FAERS Safety Report 5995173-3 (Version None)
Quarter: 2008Q4

REPORT INFORMATION
  Report Type: 
  Country: None (occurrence: None)
  Receive Date: 20081212
  Receipt Date: 20080610
  Transmission Date: 20090506
  Serious: No
  Sender: FDA-Public Use
  Company Number: US-AMGEN-KDL285299

PATIENT
  Sex: Female
  Weight: 78.1 kg

DRUGS (6)
  1. ENBREL [Suspect]
     Indication: RHEUMATOID ARTHRITIS
     Route: 058
     Dates: start: 20070622
  2. ARAVA [Concomitant]
  3. COLCHICINE [Concomitant]
  4. HUMALOG [Concomitant]
  5. LOXAPINE [Concomitant]
  6. SEROQUEL [Concomitant]

REACTIONS (4)
  - CONTUSION [None]
  - INJECTION SITE HAEMATOMA [None]
  - NEUTROPENIA [None]
  - RHEUMATOID ARTHRITIS [None]
